FAERS Safety Report 22585610 (Version 1)
Quarter: 2023Q2

REPORT INFORMATION
  Report Type: Spontaneous
  Country: US (occurrence: US)
  Receive Date: 20230610
  Receipt Date: 20230610
  Transmission Date: 20230722
  Serious: Yes (Hospitalization, Other)
  Sender: FDA-Public Use
  Company Number: US-GRANULES-US-2023GRALIT00132

PATIENT
  Age: 37 Year
  Sex: Male

DRUGS (1)
  1. ACETAMINOPHEN [Suspect]
     Active Substance: ACETAMINOPHEN
     Indication: Product used for unknown indication
     Route: 065

REACTIONS (8)
  - Tachycardia [Unknown]
  - Hypothermia [Unknown]
  - Tachypnoea [Unknown]
  - Hypertension [Unknown]
  - Acidosis [Unknown]
  - Hepatotoxicity [Not Recovered/Not Resolved]
  - Drug interaction [Unknown]
  - Overdose [Unknown]
